FAERS Safety Report 17749460 (Version 1)
Quarter: 2020Q2

REPORT INFORMATION
  Report Type: Spontaneous
  Country: IN (occurrence: IN)
  Receive Date: 20200506
  Receipt Date: 20200506
  Transmission Date: 20200714
  Serious: Yes (Hospitalization, Other)
  Sender: FDA-Public Use
  Company Number: IN-CIPLA LTD.-2020IN03066

PATIENT

DRUGS (1)
  1. AMLODIPINE [Suspect]
     Active Substance: AMLODIPINE BESYLATE
     Indication: HYPERTENSION
     Dosage: 10 MILLIGRAM, QD
     Route: 048

REACTIONS (5)
  - Mastication disorder [Recovered/Resolved]
  - Breath odour [Recovered/Resolved]
  - Gingival hypertrophy [Recovered/Resolved]
  - Gingival bleeding [Recovered/Resolved]
  - Oral discharge [Recovered/Resolved]
